FAERS Safety Report 7588419-1 (Version None)
Quarter: 2011Q3

REPORT INFORMATION
  Report Type: 
  Country: None (occurrence: None)
  Receive Date: 20110705
  Receipt Date: 20110518
  Transmission Date: 20111222
  Serious: Yes (Hospitalization)
  Sender: FDA-Public Use
  Company Number: JP-BAYER-2011-042622

PATIENT
  Age: 71 Year
  Sex: Male
  Weight: 64 kg

DRUGS (7)
  1. PRIMPERAN TAB [Suspect]
     Indication: HICCUPS
     Dosage: 10 MG
     Route: 048
     Dates: start: 20110515, end: 20110516
  2. NEXAVAR [Suspect]
     Indication: HEPATIC NEOPLASM MALIGNANT
     Dosage: 200 MG, TID
     Route: 048
     Dates: start: 20110502, end: 20110515
  3. ATARAX [Suspect]
     Dosage: 25 MG, BID
     Route: 030
     Dates: start: 20110515
  4. PASTARON [Concomitant]
     Indication: PROPHYLAXIS
     Dosage: UNK
     Route: 061
     Dates: start: 20110510, end: 20110515
  5. ATARAX [Suspect]
     Indication: HICCUPS
     Dosage: UNK
     Route: 048
     Dates: start: 20110501
  6. PHENOBARBITAL TAB [Suspect]
     Dosage: 200 MG
     Route: 030
     Dates: start: 20110517, end: 20110517
  7. PHENOBARBITAL TAB [Suspect]
     Indication: HICCUPS
     Dosage: 100 MG
     Route: 048
     Dates: start: 20110516, end: 20110516

REACTIONS (3)
  - HICCUPS [None]
  - RASH [None]
  - APHAGIA [None]
